FAERS Safety Report 10549530 (Version 1)
Quarter: 2014Q4

REPORT INFORMATION
  Report Type: Spontaneous
  Country: US (occurrence: None)
  Receive Date: 20141020
  Receipt Date: 20141020
  Transmission Date: 20150529
  Serious: No
  Sender: FDA-Public Use
  Company Number: AEGR000635

PATIENT
  Age: 47 Year
  Sex: Female
  Weight: 111.6 kg

DRUGS (11)
  1. JUXTAPID [Suspect]
     Active Substance: LOMITAPIDE MESYLATE
     Indication: TYPE IIA HYPERLIPIDAEMIA
     Route: 048
     Dates: start: 201401
  2. BIOTIN (BIOTIN) [Concomitant]
  3. VIT C (ASCORBIC ACID) [Concomitant]
  4. LYSINE (LYSINE) [Concomitant]
     Active Substance: LYSINE
  5. YEAST-GARD (OCTOXINOL) [Concomitant]
  6. SYNTHROID [Concomitant]
     Active Substance: LEVOTHYROXINE SODIUM
  7. ASPIRIN (ACETYLSALICYLIC ACID) [Concomitant]
     Active Substance: ASPIRIN
  8. VIT B COMPLEX (VITAMIN B COMPLEX) [Concomitant]
  9. LISINOPRIL HCTZ (HYDROCHLOROTHIAZIDE, LISINOPRIL) [Concomitant]
  10. FENOFIBRATE (FENOFIBRATE) [Concomitant]
  11. LOVASTATIN (LOVASTATIN) [Concomitant]
     Active Substance: LOVASTATIN

REACTIONS (5)
  - Musculoskeletal pain [None]
  - Pain [None]
  - Tendonitis [None]
  - Neck pain [None]
  - Sinusitis [None]

NARRATIVE: CASE EVENT DATE: 2014
